FAERS Safety Report 8516623 (Version 5)
Quarter: 2014Q1

REPORT INFORMATION
  Report Type: Spontaneous
  Country: US (occurrence: US)
  Receive Date: 20120417
  Receipt Date: 20140108
  Transmission Date: 20141002
  Serious: Yes (Other)
  Sender: FDA-Public Use
  Company Number: US-ASTRAZENECA-2011SE65174

PATIENT
  Age: 50 Year
  Sex: Female
  Weight: 169 kg

DRUGS (15)
  1. NEXIUM [Suspect]
     Indication: GASTRIC ULCER
     Route: 048
     Dates: start: 2005, end: 201311
  2. NEXIUM [Suspect]
     Indication: GASTRIC ULCER
     Dosage: TWO TIMES A DAY
     Route: 048
  3. ATENOLOL [Suspect]
     Indication: BLOOD PRESSURE ABNORMAL
     Route: 048
  4. ATENOLOL [Suspect]
     Indication: BLOOD PRESSURE ABNORMAL
     Route: 048
     Dates: start: 2008
  5. SEROQUEL XR [Suspect]
     Indication: DEPRESSION
     Route: 048
     Dates: start: 2008
  6. SEROQUEL XR [Suspect]
     Indication: INSOMNIA
     Route: 048
     Dates: start: 2008
  7. SEROQUEL XR [Suspect]
     Indication: TACHYPHRENIA
     Route: 048
     Dates: start: 2008
  8. SEROQUEL XR [Suspect]
     Indication: DEPRESSION
     Route: 048
  9. SEROQUEL XR [Suspect]
     Indication: INSOMNIA
     Route: 048
  10. SEROQUEL XR [Suspect]
     Indication: TACHYPHRENIA
     Route: 048
  11. SEROQUEL XR [Suspect]
     Indication: DEPRESSION
     Route: 048
  12. SEROQUEL XR [Suspect]
     Indication: INSOMNIA
     Route: 048
  13. SEROQUEL XR [Suspect]
     Indication: TACHYPHRENIA
     Route: 048
  14. LORTAB [Concomitant]
     Indication: PAIN
     Dosage: 5.5 BID
     Dates: start: 2011
  15. PERCOCET [Concomitant]
     Indication: PAIN
     Route: 048
     Dates: start: 2008, end: 2011

REACTIONS (29)
  - Fall [Unknown]
  - Intervertebral disc protrusion [Unknown]
  - Intervertebral disc protrusion [Unknown]
  - Mental disorder [Unknown]
  - Gastrooesophageal reflux disease [Unknown]
  - Adverse event [Unknown]
  - Dyspepsia [Unknown]
  - Stress [Unknown]
  - Tachyphrenia [Unknown]
  - Restlessness [Unknown]
  - Gastric disorder [Unknown]
  - Regurgitation [Not Recovered/Not Resolved]
  - Chest discomfort [Unknown]
  - Mental disorder [Unknown]
  - Neck pain [Unknown]
  - Loss of consciousness [Not Recovered/Not Resolved]
  - Diabetes mellitus [Not Recovered/Not Resolved]
  - Blood pressure fluctuation [Unknown]
  - Physical abuse [Unknown]
  - Musculoskeletal pain [Unknown]
  - Cough [Not Recovered/Not Resolved]
  - Depression [Unknown]
  - Headache [Not Recovered/Not Resolved]
  - Vomiting [Not Recovered/Not Resolved]
  - Insomnia [Unknown]
  - Drug effect decreased [Unknown]
  - Intentional drug misuse [Unknown]
  - Off label use [Unknown]
  - Drug dose omission [Unknown]
